FAERS Safety Report 12387493 (Version 1)
Quarter: 2016Q2

REPORT INFORMATION
  Report Type: Spontaneous
  Country: US (occurrence: US)
  Receive Date: 20160520
  Receipt Date: 20160520
  Transmission Date: 20160815
  Serious: Yes (Hospitalization, Disabling)
  Sender: FDA-Public Use
  Company Number: US-ROCHE-1759117

PATIENT
  Age: 74 Year
  Sex: Female

DRUGS (1)
  1. AVASTIN [Suspect]
     Active Substance: BEVACIZUMAB
     Indication: OVARIAN CANCER
     Route: 065

REACTIONS (5)
  - Confusional state [Unknown]
  - Visual field defect [Unknown]
  - Intestinal perforation [Unknown]
  - Vision blurred [Unknown]
  - Blindness [Unknown]

NARRATIVE: CASE EVENT DATE: 201601
